FAERS Safety Report 18742011 (Version 2)
Quarter: 2021Q1

REPORT INFORMATION
  Report Type: Report from Study
  Country: None (occurrence: US)
  Receive Date: 20210114
  Receipt Date: 20210225
  Transmission Date: 20210419
  Serious: Yes (Other)
  Sender: FDA-Public Use
  Company Number: US-ABBVIE-21K-163-3729717-00

PATIENT
  Sex: Male

DRUGS (8)
  1. LISINOPRIL. [Concomitant]
     Active Substance: LISINOPRIL
     Indication: PRODUCT USED FOR UNKNOWN INDICATION
  2. MELATONIN [Concomitant]
     Active Substance: MELATONIN
     Indication: PRODUCT USED FOR UNKNOWN INDICATION
  3. OMEPRAZOLE. [Concomitant]
     Active Substance: OMEPRAZOLE
     Indication: PRODUCT USED FOR UNKNOWN INDICATION
  4. IMBRUVICA [Suspect]
     Active Substance: IBRUTINIB
     Indication: LYMPHOCYTIC LEUKAEMIA
     Route: 048
  5. IMBRUVICA [Suspect]
     Active Substance: IBRUTINIB
     Route: 048
     Dates: start: 2021
  6. FERROUS SULFATE. [Concomitant]
     Active Substance: FERROUS SULFATE
     Indication: PRODUCT USED FOR UNKNOWN INDICATION
  7. SERTRALINE HYDROCHLORIDE. [Concomitant]
     Active Substance: SERTRALINE HYDROCHLORIDE
     Indication: PRODUCT USED FOR UNKNOWN INDICATION
  8. HYDROXYZINE PAMOATE. [Concomitant]
     Active Substance: HYDROXYZINE PAMOATE
     Indication: PRODUCT USED FOR UNKNOWN INDICATION

REACTIONS (5)
  - Upper limb fracture [Unknown]
  - Dizziness [Not Recovered/Not Resolved]
  - Wrist fracture [Unknown]
  - Syncope [Not Recovered/Not Resolved]
  - Loss of consciousness [Unknown]

NARRATIVE: CASE EVENT DATE: 2021
